FAERS Safety Report 8877849 (Version 1)
Quarter: 2012Q4

REPORT INFORMATION
  Report Type: 
  Country: US (occurrence: US)
  Receive Date: 20121025
  Receipt Date: 20121025
  Transmission Date: 20130627
  Serious: No
  Sender: FDA-Public Use
  Company Number: US-AMGEN-USASP2012019933

PATIENT
  Sex: Female
  Weight: 95.69 kg

DRUGS (9)
  1. ENBREL [Suspect]
     Indication: PRODUCT USED FOR UNKNOWN INDICATION
     Dosage: 50 mg, qwk
     Route: 058
  2. METHOTREXATE [Concomitant]
     Dosage: 2.5 mg, UNK
  3. IBU [Concomitant]
     Dosage: 400 mg, UNK
  4. LISINOPRIL [Concomitant]
     Dosage: 2.5 mg, UNK
  5. METFORMIN [Concomitant]
     Dosage: 850 mg, UNK
  6. LANSOPRAZOLE [Concomitant]
     Dosage: 15 mg, UNK
  7. METHOCARBAMOL [Concomitant]
     Dosage: 750 mg, UNK
  8. VITAMIN D /00107901/ [Concomitant]
     Dosage: UNK
  9. FOLIC ACID [Concomitant]
     Dosage: UNK

REACTIONS (2)
  - Ear infection [Unknown]
  - Pharyngitis [Unknown]
